FAERS Safety Report 6190612-X (Version None)
Quarter: 2009Q2

REPORT INFORMATION
  Report Type: 
  Country: None (occurrence: None)
  Receive Date: 20090514
  Receipt Date: 20090319
  Transmission Date: 20091009
  Serious: No
  Sender: FDA-Public Use
  Company Number: US-BRISTOL-MYERS SQUIBB COMPANY-14551931

PATIENT
  Age: 53 Year
  Sex: Female
  Weight: 97 kg

DRUGS (13)
  1. IXEMPRA KIT [Suspect]
     Indication: BREAST CANCER METASTATIC
     Dates: start: 20090121
  2. LEXAPRO [Concomitant]
  3. DYAZIDE [Concomitant]
  4. PROTONIX [Concomitant]
  5. ADVAIR HFA [Concomitant]
  6. WELLBUTRIN [Concomitant]
  7. LEVOXYL [Concomitant]
  8. TOPROL-XL [Concomitant]
  9. FENTANYL [Concomitant]
  10. DECADRON [Concomitant]
  11. PERCOCET [Concomitant]
  12. ZANTAC [Concomitant]
     Indication: PREMEDICATION
  13. BENADRYL [Concomitant]
     Indication: PREMEDICATION

REACTIONS (3)
  - MUSCULOSKELETAL PAIN [None]
  - OEDEMA [None]
  - SKIN OEDEMA [None]
